FAERS Safety Report 20544214 (Version 2)
Quarter: 2022Q2

REPORT INFORMATION
  Report Type: Report from Study
  Country: US (occurrence: US)
  Receive Date: 20220303
  Receipt Date: 20220502
  Transmission Date: 20220721
  Serious: Yes (Hospitalization)
  Sender: FDA-Public Use
  Company Number: US-BIOGEN-2022BI01100552

PATIENT
  Sex: Female

DRUGS (1)
  1. SPINRAZA [Suspect]
     Active Substance: NUSINERSEN
     Indication: Spinal muscular atrophy
     Route: 065
     Dates: start: 20180129, end: 20210315

REACTIONS (8)
  - Pulmonary hypertension [Unknown]
  - Sepsis [Recovered/Resolved]
  - Coma [Unknown]
  - Gastric haemorrhage [Recovered/Resolved]
  - Hypotension [Unknown]
  - Dyspnoea [Unknown]
  - Fatigue [Unknown]
  - Amnesia [Not Recovered/Not Resolved]
